FAERS Safety Report 4935170-X (Version None)
Quarter: 2006Q1

REPORT INFORMATION
  Report Type: 
  Country: None (occurrence: None)
  Receive Date: 20060303
  Receipt Date: 20060303
  Transmission Date: 20060701
  Serious: Yes (Other)
  Sender: FDA-Public Use
  Company Number: None

PATIENT
  Age: 49 Year
  Sex: Male

DRUGS (3)
  1. CARBAMAZEPINE [Suspect]
     Indication: CONVULSION
     Dosage: 300 MG PO AM + BEDTIME 200 MG @ NOON
     Route: 048
     Dates: start: 20051115, end: 20051129
  2. CARBAMAZEPINE [Suspect]
     Indication: INTERMITTENT EXPLOSIVE DISORDER
     Dosage: 300 MG PO AM + BEDTIME 200 MG @ NOON
     Route: 048
     Dates: start: 20051115, end: 20051129
  3. CARBAMAZEPINE [Suspect]
     Indication: PSYCHOTIC DISORDER
     Dosage: 300 MG PO AM + BEDTIME 200 MG @ NOON
     Route: 048
     Dates: start: 20051115, end: 20051129

REACTIONS (4)
  - ABNORMAL BEHAVIOUR [None]
  - AGGRESSION [None]
  - PHARMACEUTICAL PRODUCT COMPLAINT [None]
  - VERBAL ABUSE [None]
